FAERS Safety Report 6698095-8 (Version None)
Quarter: 2010Q2

REPORT INFORMATION
  Report Type: 
  Country: None (occurrence: None)
  Receive Date: 20100427
  Receipt Date: 20100413
  Transmission Date: 20101027
  Serious: Yes (Hospitalization)
  Sender: FDA-Public Use
  Company Number: US-ASTRAZENECA-2010SE16212

PATIENT
  Age: 57 Year
  Sex: Female
  Weight: 99.8 kg

DRUGS (20)
  1. SEROQUEL [Suspect]
     Indication: SCHIZOAFFECTIVE DISORDER
     Route: 048
     Dates: end: 20100301
  2. SEROQUEL [Suspect]
     Route: 048
     Dates: start: 20100301
  3. DEPAKOTE [Suspect]
     Indication: SCHIZOAFFECTIVE DISORDER
     Dosage: 750 MG IN AM AND 500MG X 2 QHS
     Route: 048
     Dates: start: 20020101, end: 20100301
  4. DEPAKOTE [Suspect]
     Route: 048
     Dates: start: 20100301
  5. ERGOCALCIFEROL [Concomitant]
  6. VITAMIN E [Concomitant]
  7. TRAMADOL HYDROCHLORIDE [Concomitant]
     Indication: PAIN IN EXTREMITY
  8. THERAPEUTIC [Concomitant]
     Dosage: ONE TABLET IN ONE DAY
  9. LEVOTHYROXINE SODIUM [Concomitant]
     Route: 048
  10. SIMVASTATIN [Concomitant]
     Route: 048
  11. FISH OIL [Concomitant]
  12. FUROSEMIDE [Concomitant]
  13. HALOPERIDOL [Concomitant]
     Indication: SCHIZOAFFECTIVE DISORDER
  14. METAMUCIL-2 [Concomitant]
     Dosage: ONE TABLET AT BEDTIME
  15. MIRTAZAPINE [Concomitant]
     Indication: SCHIZOAFFECTIVE DISORDER
  16. OMEPRAZOLE [Concomitant]
  17. CLONAZEPAM [Concomitant]
     Indication: SCHIZOAFFECTIVE DISORDER
  18. LORAZEPAM [Concomitant]
     Indication: SCHIZOAFFECTIVE DISORDER
     Dosage: 6 MG (2MG AS REQUIRED)
  19. MAGNESIUM HYDROXIDE TAB [Concomitant]
  20. DOCUSATE SODIUM [Concomitant]

REACTIONS (10)
  - ASTHENIA [None]
  - CELLULITIS [None]
  - GLUCOSE TOLERANCE IMPAIRED [None]
  - LISTLESS [None]
  - OEDEMA PERIPHERAL [None]
  - PULMONARY THROMBOSIS [None]
  - SEDATION [None]
  - THROMBOSIS [None]
  - VITAMIN D DECREASED [None]
  - WEIGHT DECREASED [None]
